FAERS Safety Report 6396123-0 (Version None)
Quarter: 2009Q4

REPORT INFORMATION
  Report Type: 
  Country: None (occurrence: None)
  Receive Date: 20091009
  Receipt Date: 20091005
  Transmission Date: 20100525
  Serious: Yes (Hospitalization, Other)
  Sender: FDA-Public Use
  Company Number: US-MERCK-0708USA02521

PATIENT
  Age: 60 Year
  Sex: Male

DRUGS (3)
  1. FOSAMAX [Suspect]
     Indication: OSTEOPOROSIS
     Route: 048
     Dates: start: 19980101, end: 20070113
  2. FOSAMAX [Suspect]
     Route: 048
     Dates: start: 20060101, end: 20080113
  3. FOSAMAX [Suspect]
     Route: 048
     Dates: start: 20000701, end: 20010301

REACTIONS (14)
  - ARTHROPATHY [None]
  - CONTUSION [None]
  - CORNEAL ABRASION [None]
  - DYSPNOEA [None]
  - EYELID DISORDER [None]
  - GASTROINTESTINAL DISORDER [None]
  - JOINT SPRAIN [None]
  - MUSCULOSKELETAL CHEST PAIN [None]
  - NASAL DISORDER [None]
  - OSTEOMYELITIS [None]
  - OSTEONECROSIS [None]
  - SEPSIS [None]
  - TONGUE DISORDER [None]
  - TOOTH RESORPTION [None]
